FAERS Safety Report 7703397-X (Version None)
Quarter: 2011Q3

REPORT INFORMATION
  Report Type: 
  Country: None (occurrence: None)
  Receive Date: 20110823
  Receipt Date: 20110809
  Transmission Date: 20111222
  Serious: Yes (Hospitalization, Other)
  Sender: FDA-Public Use
  Company Number: US-CELGENEUS-163-21880-07100755

PATIENT
  Age: 69 Year
  Sex: Female
  Weight: 95 kg

DRUGS (5)
  1. REVLIMID [Suspect]
     Dosage: 20 MILLIGRAM
     Route: 048
     Dates: start: 20070713
  2. ANTIBIOTICS [Concomitant]
     Route: 048
     Dates: start: 20071001
  3. REVLIMID [Suspect]
     Dosage: 15 MILLIGRAM
     Route: 048
     Dates: start: 20070713
  4. TEMSIROLIMUS [Suspect]
     Dosage: 15 MILLIGRAM
     Route: 041
     Dates: start: 20070713
  5. COUMADIN [Concomitant]
     Route: 065

REACTIONS (5)
  - INTERNATIONAL NORMALISED RATIO INCREASED [None]
  - HYPOKALAEMIA [None]
  - DYSPNOEA [None]
  - URINARY TRACT INFECTION [None]
  - FATIGUE [None]
